FAERS Safety Report 17849699 (Version 4)
Quarter: 2021Q1

REPORT INFORMATION
  Report Type: Spontaneous
  Country: US (occurrence: US)
  Receive Date: 20200602
  Receipt Date: 20210210
  Transmission Date: 20210419
  Serious: No
  Sender: FDA-Public Use
  Company Number: US-PFIZER INC-2020214390

PATIENT
  Age: 45 Year
  Sex: Female

DRUGS (2)
  1. SERTRALINE HCL [Suspect]
     Active Substance: SERTRALINE HYDROCHLORIDE
     Indication: ANXIETY
  2. SERTRALINE HCL [Suspect]
     Active Substance: SERTRALINE HYDROCHLORIDE
     Indication: DEPRESSION
     Dosage: 200 MG, 1X/DAY (100MG, 2 BY MOUTH AT ONE TIME DAILY)
     Route: 048

REACTIONS (3)
  - Skin irritation [Unknown]
  - Drug hypersensitivity [Not Recovered/Not Resolved]
  - Gastric disorder [Unknown]
